FAERS Safety Report 17831883 (Version 2)
Quarter: 2021Q1

REPORT INFORMATION
  Report Type: Other
  Country: US (occurrence: US)
  Receive Date: 20200527
  Receipt Date: 20210324
  Transmission Date: 20210419
  Serious: Yes (Other)
  Sender: FDA-Public Use
  Company Number: US-ROCHE-2553214

PATIENT
  Sex: Female
  Weight: 64.92 kg

DRUGS (17)
  1. OCREVUS [Suspect]
     Active Substance: OCRELIZUMAB
     Indication: MULTIPLE SCLEROSIS
     Dosage: ONGOING: YES
     Route: 042
     Dates: start: 20190910
  2. MUCINEX [Concomitant]
     Active Substance: GUAIFENESIN
     Indication: CHRONIC SINUSITIS
     Dosage: STARTED ABOUT 3 YEARS AGO BEDTIME
     Route: 048
  3. DILAUDID [Concomitant]
     Active Substance: HYDROMORPHONE HYDROCHLORIDE
     Indication: PAIN
     Route: 048
     Dates: start: 2018
  4. DIAZEPAM. [Concomitant]
     Active Substance: DIAZEPAM
     Indication: PAIN
     Dosage: STARTED ABOUT 2.5 TO 3 YEARS AGO
     Route: 048
  5. FAMOTIDINE. [Concomitant]
     Active Substance: FAMOTIDINE
     Indication: HYPERSENSITIVITY
     Dosage: STARTED ABOUT 2 MONTHS AGO
     Route: 048
     Dates: start: 2021
  6. DOCUSATE SODIUM. [Concomitant]
     Active Substance: DOCUSATE SODIUM
     Indication: CONSTIPATION
     Dosage: 3 TO 6 TIMES A DAY AS NEEDED
     Route: 048
     Dates: start: 2018
  7. CHARCOCAPS [Concomitant]
     Indication: FLATULENCE
  8. CHARCOCAPS [Concomitant]
     Indication: FLATULENCE
  9. OCREVUS [Suspect]
     Active Substance: OCRELIZUMAB
     Route: 042
     Dates: start: 202003, end: 202003
  10. OCREVUS [Suspect]
     Active Substance: OCRELIZUMAB
     Route: 042
     Dates: start: 202009
  11. CETIRIZINE HCL [Concomitant]
     Active Substance: CETIRIZINE HYDROCHLORIDE
     Indication: HYPERSENSITIVITY
     Route: 048
  12. SPIRONOLACTONE. [Concomitant]
     Active Substance: SPIRONOLACTONE
     Indication: FLUID RETENTION
     Dosage: AT BEDTIME
     Route: 048
     Dates: start: 2018
  13. IBUPROFEN. [Concomitant]
     Active Substance: IBUPROFEN
     Indication: PAIN
     Route: 048
     Dates: start: 2018
  14. OMEPRAZOLE. [Concomitant]
     Active Substance: OMEPRAZOLE
     Indication: GASTROOESOPHAGEAL REFLUX DISEASE
     Dosage: STARTED A COUPLE YEARS AGO AS NEEDED
     Route: 048
  15. CHARCOCAPS [Concomitant]
     Indication: ABDOMINAL DISTENSION
     Route: 048
     Dates: start: 2018
  16. DICYCLOMINE [Concomitant]
     Active Substance: DICYCLOMINE HYDROCHLORIDE
     Indication: GASTROINTESTINAL PAIN
     Dosage: STARTED 2017 OR 2018
     Route: 048
  17. MONTELUKAST [Concomitant]
     Active Substance: MONTELUKAST SODIUM
     Route: 048
     Dates: start: 2017

REACTIONS (14)
  - Dizziness [Recovered/Resolved]
  - Aphasia [Not Recovered/Not Resolved]
  - Nausea [Recovered/Resolved]
  - Migraine [Recovered/Resolved]
  - Gait disturbance [Not Recovered/Not Resolved]
  - Dysphagia [Not Recovered/Not Resolved]
  - Diarrhoea [Recovered/Resolved]
  - Therapeutic response shortened [Not Recovered/Not Resolved]
  - Pruritus [Not Recovered/Not Resolved]
  - Plantar fasciitis [Not Recovered/Not Resolved]
  - Pain [Recovered/Resolved]
  - Muscle fatigue [Unknown]
  - Vomiting [Recovered/Resolved]
  - Urinary tract infection [Recovered/Resolved]

NARRATIVE: CASE EVENT DATE: 2020
